FAERS Safety Report 7204046-X (Version None)
Quarter: 2010Q4

REPORT INFORMATION
  Report Type: 
  Country: None (occurrence: None)
  Receive Date: 20101220
  Receipt Date: 20101202
  Transmission Date: 20110411
  Serious: No
  Sender: FDA-Public Use
  Company Number: BVT-000622

PATIENT
  Age: 34 Year
  Sex: Male

DRUGS (3)
  1. KINERET [Suspect]
     Indication: STILL'S DISEASE ADULT ONSET
     Dosage: 100 MG, 1 IN 1 D, SUBCUTANEOUS
     Route: 058
     Dates: start: 20070501
  2. UVEDOSE (COLECALCIFEROL) [Suspect]
     Dosage: AMPOULE, 1 IN 3 M
  3. ACLASTA (ZOLEDRONIC ACID) [Suspect]
     Dosage: 1 IN 1 Y, INTRAVENOUS
     Route: 042

REACTIONS (2)
  - MULTIPLE DRUG OVERDOSE [None]
  - PREGNANCY OF PARTNER [None]
